FAERS Safety Report 10020110 (Version 1)
Quarter: 2014Q1

REPORT INFORMATION
  Report Type: Spontaneous
  Country: IT (occurrence: IT)
  Receive Date: 20140319
  Receipt Date: 20140319
  Transmission Date: 20141002
  Serious: Yes (Other)
  Sender: FDA-Public Use
  Company Number: IT-ROCHE-1365933

PATIENT
  Age: 45 Year
  Sex: Female
  Weight: 60 kg

DRUGS (3)
  1. PEGASYS [Suspect]
     Indication: ANTIVIRAL TREATMENT
     Route: 058
     Dates: start: 20130913, end: 20140225
  2. COPEGUS [Interacting]
     Indication: ANTIVIRAL TREATMENT
     Route: 048
     Dates: start: 20130913, end: 20140225
  3. INCIVO [Interacting]
     Indication: ANTIVIRAL TREATMENT
     Route: 048
     Dates: start: 20131015, end: 20140107

REACTIONS (2)
  - Drug interaction [Unknown]
  - Pancytopenia [Recovering/Resolving]
